FAERS Safety Report 18330359 (Version 3)
Quarter: 2020Q4

REPORT INFORMATION
  Report Type: Spontaneous
  Country: JP (occurrence: JP)
  Receive Date: 20200930
  Receipt Date: 20201223
  Transmission Date: 20210113
  Serious: Yes (Hospitalization)
  Sender: FDA-Public Use
  Company Number: JP-BRISTOL-MYERS SQUIBB COMPANY-BMS-2020-078507

PATIENT
  Age: 76 Year
  Sex: Male
  Weight: 46 kg

DRUGS (2)
  1. OPDIVO [Suspect]
     Active Substance: NIVOLUMAB
     Indication: NON-SMALL CELL LUNG CANCER RECURRENT
     Dosage: 240 MG, Q2W (3 MG/KG)
     Route: 041
     Dates: start: 20160426
  2. TAMSULOSIN HYDROCHLORIDE. [Concomitant]
     Active Substance: TAMSULOSIN HYDROCHLORIDE
     Indication: PRODUCT USED FOR UNKNOWN INDICATION
     Dosage: 0.2 MILLIGRAM
     Route: 048
     Dates: start: 201406

REACTIONS (1)
  - Adrenal disorder [Recovering/Resolving]

NARRATIVE: CASE EVENT DATE: 20171023
